FAERS Safety Report 8766736 (Version 6)
Quarter: 2014Q1

REPORT INFORMATION
  Report Type: Report from Study
  Country: JP (occurrence: JP)
  Receive Date: 20120904
  Receipt Date: 20140203
  Transmission Date: 20141002
  Serious: Yes (Hospitalization, Other)
  Sender: FDA-Public Use
  Company Number: JP-VERTEX PHARMACEUTICAL INC.-AE-2012-006314

PATIENT
  Age: 62 Year
  Sex: Male

DRUGS (19)
  1. VX-950 (TELAPREVIR) [Suspect]
     Indication: CHRONIC HEPATITIS C
     Dosage: 2250 MG, QD
     Route: 048
     Dates: start: 20120305, end: 20120501
  2. VX-950 (TELAPREVIR) [Suspect]
     Dosage: 1500 MG, QD
     Route: 048
     Dates: start: 20120502, end: 20120528
  3. REBETOL [Suspect]
     Indication: CHRONIC HEPATITIS C
     Dosage: 800 MG, QD
     Route: 048
     Dates: start: 20120305, end: 20120325
  4. REBETOL [Suspect]
     Dosage: 400 MG, QD
     Route: 048
     Dates: start: 20120326, end: 20120408
  5. REBETOL [Suspect]
     Dosage: 200 MG, QD
     Route: 048
     Dates: start: 20120409, end: 20120819
  6. PEGINTRON [Suspect]
     Indication: CHRONIC HEPATITIS C
     Dosage: 1.5 ?G/KG, QW
     Route: 058
     Dates: start: 20120305, end: 20120416
  7. PEGINTRON [Suspect]
     Dosage: 1.3 ?G/KG, QW
     Route: 058
     Dates: start: 20120423, end: 20120521
  8. PEGINTRON [Suspect]
     Dosage: 0.89 ?G/KG, QW
     Route: 058
     Dates: start: 20120522, end: 20120604
  9. PEGINTRON [Suspect]
     Dosage: 0.44 ?G/KG, QW
     Route: 058
     Dates: start: 20120611, end: 20120618
  10. PEGINTRON [Suspect]
     Dosage: 0.3 ?G/KG, QW
     Route: 058
     Dates: start: 20120625, end: 20120625
  11. PEGINTRON [Suspect]
     Dosage: 0.22 ?G/KG, QW
     Route: 058
     Dates: start: 20120702, end: 20120813
  12. ADALAT CR [Suspect]
     Indication: HYPERTENSION
     Dosage: 40 MG, QD
     Route: 048
     Dates: end: 20120610
  13. LIVALO [Suspect]
     Indication: HYPERLIPIDAEMIA
     Dosage: 1 MG, QD
     Route: 048
     Dates: end: 20120610
  14. URALYT [Suspect]
     Indication: HYPERURICAEMIA
     Dosage: 6 DF, QD
     Route: 048
     Dates: start: 20120319, end: 20120610
  15. MYSLEE [Concomitant]
     Dosage: 10 MG, QD
     Route: 048
     Dates: end: 20120513
  16. URSO [Concomitant]
     Dosage: 300 MG, QD
     Route: 048
     Dates: start: 20120402, end: 20120624
  17. URSO [Concomitant]
     Dosage: 600 MG, QD
     Route: 048
     Dates: start: 20120625
  18. GASTER D [Concomitant]
     Dosage: 40 MG, QD
     Route: 048
     Dates: start: 20120607
  19. BLOPRESS [Concomitant]
     Dosage: 8 MG, QD
     Route: 048

REACTIONS (3)
  - Blood creatinine increased [Recovered/Resolved]
  - Rash [Recovered/Resolved]
  - Hyperuricaemia [Recovered/Resolved]
